FAERS Safety Report 15290055 (Version 1)
Quarter: 2018Q3

REPORT INFORMATION
  Report Type: Report from Study
  Country: US (occurrence: US)
  Receive Date: 20180817
  Receipt Date: 20180817
  Transmission Date: 20181010
  Serious: Yes (Disabling)
  Sender: FDA-Public Use
  Company Number: US-GILEAD-2018-0356721

PATIENT
  Age: 70 Year
  Sex: Male

DRUGS (1)
  1. SOFOSBUVIR W/VELPATASVIR [Suspect]
     Active Substance: SOFOSBUVIR\VELPATASVIR
     Indication: HEPATITIS C
     Dosage: 1 DF, QD
     Route: 065
     Dates: start: 20180801

REACTIONS (2)
  - Bedridden [Not Recovered/Not Resolved]
  - Fatigue [Not Recovered/Not Resolved]

NARRATIVE: CASE EVENT DATE: 20180801
